FAERS Safety Report 7490505-1 (Version None)
Quarter: 2011Q2

REPORT INFORMATION
  Report Type: 
  Country: None (occurrence: None)
  Receive Date: 20110517
  Receipt Date: 20110517
  Transmission Date: 20111010
  Serious: Yes (Death)
  Sender: FDA-Public Use
  Company Number: None

PATIENT
  Sex: Female
  Weight: 65.7716 kg

DRUGS (1)
  1. MORPHINE SULFATE [Suspect]
     Indication: ARTHRALGIA
     Dosage: Q 12 HOURS PO
     Route: 048
     Dates: start: 20110326, end: 20110327

REACTIONS (7)
  - PRURITUS [None]
  - MENTAL STATUS CHANGES [None]
  - HYPOTENSION [None]
  - SWELLING [None]
  - FLUID OVERLOAD [None]
  - CARDIAC FAILURE CONGESTIVE [None]
  - ERYTHEMA [None]
